FAERS Safety Report 9266694 (Version 1)
Quarter: 2013Q2

REPORT INFORMATION
  Report Type: Spontaneous
  Country: US (occurrence: US)
  Receive Date: 20130502
  Receipt Date: 20130502
  Transmission Date: 20140414
  Serious: Yes (Hospitalization, Other)
  Sender: FDA-Public Use
  Company Number: 2013SP003775

PATIENT
  Age: 22 Year
  Sex: Female

DRUGS (3)
  1. VANCOMYCIN [Suspect]
     Indication: CELLULITIS
  2. ZOSYN [Concomitant]
  3. CLINDAMYCIN [Concomitant]

REACTIONS (4)
  - Renal failure acute [Recovering/Resolving]
  - Blood creatinine increased [Recovering/Resolving]
  - Toxicity to various agents [Recovering/Resolving]
  - Exposure during pregnancy [Unknown]
